FAERS Safety Report 7779871-7 (Version None)
Quarter: 2011Q3

REPORT INFORMATION
  Report Type: 
  Country: None (occurrence: None)
  Receive Date: 20110927
  Receipt Date: 20110922
  Transmission Date: 20111222
  Serious: Yes (Hospitalization)
  Sender: FDA-Public Use
  Company Number: US-B.I. PHARMACEUTICALS,INC./RIDGEFIELD-2011-BP-22718BP

PATIENT
  Age: 66 Year
  Sex: Female

DRUGS (6)
  1. COMBIVENT [Suspect]
     Indication: ASTHMA
  2. SYMBICORT [Concomitant]
     Indication: ASTHMA
  3. SYMBICORT [Concomitant]
     Indication: CHRONIC OBSTRUCTIVE PULMONARY DISEASE
  4. SIMETHICONE [Concomitant]
  5. COMBIVENT [Suspect]
     Indication: CHRONIC OBSTRUCTIVE PULMONARY DISEASE
     Route: 055
     Dates: start: 20100101
  6. CETIRIZINE HCL [Concomitant]
     Indication: SEASONAL ALLERGY
     Dosage: 10 MG DAILY, PRN

REACTIONS (3)
  - ASTHMA [None]
  - OEDEMA PERIPHERAL [None]
  - INCREASED TENDENCY TO BRUISE [None]
